FAERS Safety Report 8320450-0 (Version None)
Quarter: 2012Q2

REPORT INFORMATION
  Report Type: 
  Country: None (occurrence: None)
  Receive Date: 20120426
  Receipt Date: 20120426
  Transmission Date: 20120825
  Serious: No
  Sender: FDA-Public Use
  Company Number: None

PATIENT
  Sex: Female
  Weight: 52.1637 kg

DRUGS (2)
  1. POLYTRIM [Suspect]
     Indication: DRY EYE
     Dosage: 1 DROP 4 X DAILY MARCH 27 - APRIL 1ST
  2. POLYTRIM [Suspect]
     Indication: CORNEAL DISORDER
     Dosage: 1 DROP 4 X DAILY MARCH 27 - APRIL 1ST

REACTIONS (4)
  - CORNEAL DISORDER [None]
  - EYE PRURITUS [None]
  - EYELID OEDEMA [None]
  - DRY EYE [None]
